FAERS Safety Report 4442352-2 (Version None)
Quarter: 2004Q3

REPORT INFORMATION
  Report Type: 
  Country: None (occurrence: None)
  Receive Date: 20040903
  Receipt Date: 20040715
  Transmission Date: 20050211
  Serious: Yes (Disabling)
  Sender: FDA-Public Use
  Company Number: 2004UW14696

PATIENT
  Age: 64 Year
  Sex: Male
  Weight: 73.4827 kg

DRUGS (5)
  1. CRESTOR [Suspect]
     Indication: BLOOD CHOLESTEROL INCREASED
     Dosage: 10 MG PO
     Route: 048
     Dates: start: 20040101, end: 20040701
  2. BLOOD PRESSURE PILL [Concomitant]
  3. VALIUM [Concomitant]
  4. LOMOTIL [Concomitant]
  5. ALLERGY PILLS [Concomitant]

REACTIONS (3)
  - ASTHENIA [None]
  - DECREASED APPETITE [None]
  - WEIGHT DECREASED [None]
